FAERS Safety Report 9742169 (Version 3)
Quarter: 2014Q1

REPORT INFORMATION
  Report Type: Spontaneous
  Country: US (occurrence: US)
  Receive Date: 20131210
  Receipt Date: 20140129
  Transmission Date: 20141002
  Serious: Yes (Other)
  Sender: FDA-Public Use
  Company Number: US-009507513-1311USA009486

PATIENT
  Age: 30 Year
  Sex: Female
  Weight: 131.7 kg

DRUGS (5)
  1. NEXPLANON [Suspect]
     Indication: CONTRACEPTION
     Dosage: ONE ROD, ONCE
     Route: 059
     Dates: start: 20131113, end: 20131114
  2. NEXPLANON [Suspect]
     Dosage: UNK
     Route: 059
     Dates: start: 20131204
  3. HYDROCHLOROTHIAZIDE [Concomitant]
  4. NEXIUM [Concomitant]
  5. ADIPEX [Concomitant]

REACTIONS (5)
  - Device expulsion [Recovered/Resolved]
  - Cellulitis [Unknown]
  - Implant site bruising [Unknown]
  - Implant site pain [Unknown]
  - Discomfort [Recovered/Resolved]
